FAERS Safety Report 6058051-X (Version None)
Quarter: 2009Q1

REPORT INFORMATION
  Report Type: 
  Country: None (occurrence: None)
  Receive Date: 20090127
  Receipt Date: 20090112
  Transmission Date: 20090719
  Serious: No
  Sender: FDA-Public Use
  Company Number: 237097J08USA

PATIENT
  Age: 46 Year
  Sex: Female

DRUGS (3)
  1. REBIF [Suspect]
     Indication: MULTIPLE SCLEROSIS
     Dosage: 44 MCG, 3 IN 1 WEEKS, SUBCUTANEOUS
     Route: 058
     Dates: start: 20030625
  2. NAMENDA [Concomitant]
  3. TYLENOL (COTYLENOL) [Concomitant]

REACTIONS (3)
  - DIPLOPIA [None]
  - OPHTHALMOPLEGIA [None]
  - VISION BLURRED [None]
